FAERS Safety Report 9719928 (Version 1)
Quarter: 2013Q4

REPORT INFORMATION
  Report Type: Spontaneous
  Country: US (occurrence: US)
  Receive Date: 20131128
  Receipt Date: 20131128
  Transmission Date: 20140711
  Serious: Yes (Other)
  Sender: FDA-Public Use
  Company Number: US-SA-2013SA123809

PATIENT
  Age: 60 Year
  Sex: Female

DRUGS (3)
  1. LANTUS [Suspect]
     Indication: TYPE 2 DIABETES MELLITUS
     Dosage: DOSE:30 UNIT(S)
     Route: 051
  2. NOVOLOG [Suspect]
     Route: 065
  3. GLYBURIDE [Suspect]
     Route: 065

REACTIONS (5)
  - Cerebrovascular accident [Unknown]
  - Blood glucose increased [Unknown]
  - Drug dose omission [Unknown]
  - Incorrect product storage [Unknown]
  - Drug ineffective [Unknown]
